FAERS Safety Report 4778507-7 (Version None)
Quarter: 2005Q3

REPORT INFORMATION
  Report Type: 
  Country: None (occurrence: None)
  Receive Date: 20050926
  Receipt Date: 20050425
  Transmission Date: 20060218
  Serious: Yes (Hospitalization)
  Sender: FDA-Public Use
  Company Number: US-MERCK-0504USA04448

PATIENT
  Age: 36 Year
  Sex: Male
  Weight: 82 kg

DRUGS (2)
  1. VIOXX [Suspect]
     Indication: BACK PAIN
     Route: 048
     Dates: start: 20030401, end: 20041001
  2. VIOXX [Suspect]
     Indication: SHOULDER PAIN
     Route: 048
     Dates: start: 20030401, end: 20041001

REACTIONS (5)
  - BLOOD CHOLESTEROL INCREASED [None]
  - DEPRESSION [None]
  - MYOCARDIAL INFARCTION [None]
  - POST-TRAUMATIC STRESS DISORDER [None]
  - RESTLESS LEGS SYNDROME [None]
